FAERS Safety Report 14626631 (Version 1)
Quarter: 2018Q1

REPORT INFORMATION
  Report Type: Spontaneous
  Country: US (occurrence: US)
  Receive Date: 20180310
  Receipt Date: 20180310
  Transmission Date: 20180509
  Serious: Yes (Hospitalization)
  Sender: FDA-Public Use
  Company Number: None

PATIENT
  Age: 68 Year
  Sex: Male
  Weight: 56 kg

DRUGS (3)
  1. ONDANSETRON [Suspect]
     Active Substance: ONDANSETRON
     Indication: NAUSEA
     Route: 048
     Dates: start: 20170622, end: 20170730
  2. ESCITALOPRAM [Suspect]
     Active Substance: ESCITALOPRAM OXALATE
     Indication: ANXIETY
     Dosage: 1/2 TAB EVERY DAY PO
     Route: 048
     Dates: start: 20170614, end: 20170730
  3. ONDANSETRON [Suspect]
     Active Substance: ONDANSETRON
     Indication: VOMITING
     Route: 048
     Dates: start: 20170622, end: 20170730

REACTIONS (9)
  - Dyskinesia [None]
  - Myoclonus [None]
  - Serotonin syndrome [None]
  - Hyperhidrosis [None]
  - Hyperreflexia [None]
  - Hyperthermia [None]
  - Agitation [None]
  - Mental status changes [None]
  - Hypertonia [None]

NARRATIVE: CASE EVENT DATE: 20170804
